FAERS Safety Report 6894074-6 (Version None)
Quarter: 2010Q3

REPORT INFORMATION
  Report Type: 
  Country: None (occurrence: None)
  Receive Date: 20100802
  Receipt Date: 20100722
  Transmission Date: 20110219
  Serious: Yes (Other)
  Sender: FDA-Public Use
  Company Number: US-JNJFOC-20100707925

PATIENT
  Sex: Male
  Weight: 71.22 kg

DRUGS (1)
  1. LEVAQUIN [Suspect]
     Indication: PROSTATITIS
     Route: 048
     Dates: start: 20100713, end: 20100716

REACTIONS (5)
  - ABASIA [None]
  - ABDOMINAL DISCOMFORT [None]
  - ARTHRALGIA [None]
  - MUSCLE RIGIDITY [None]
  - TENDON DISORDER [None]
